FAERS Safety Report 7296057-3 (Version None)
Quarter: 2011Q1

REPORT INFORMATION
  Report Type: 
  Country: None (occurrence: None)
  Receive Date: 20110216
  Receipt Date: 20101207
  Transmission Date: 20110831
  Serious: No
  Sender: FDA-Public Use
  Company Number: US-ABBOTT-10P-163-0690161-00

PATIENT
  Sex: Female
  Weight: 45.4 kg

DRUGS (2)
  1. CLARITIN [Concomitant]
     Indication: HYPERSENSITIVITY
  2. SIMCOR [Suspect]
     Indication: ILL-DEFINED DISORDER
     Dates: start: 20101206

REACTIONS (4)
  - BURNING SENSATION [None]
  - FLUSHING [None]
  - ERYTHEMA [None]
  - FEELING COLD [None]
